FAERS Safety Report 5215750-7 (Version None)
Quarter: 2007Q1

REPORT INFORMATION
  Report Type: 
  Country: None (occurrence: None)
  Receive Date: 20070123
  Receipt Date: 20070115
  Transmission Date: 20070707
  Serious: Yes (Other)
  Sender: FDA-Public Use
  Company Number: PHFR2006GB03091

PATIENT
  Age: 20 Year
  Sex: Female
  Weight: 50 kg

DRUGS (9)
  1. MYCOPHENOLIC ACID [Suspect]
     Indication: TRANSPLANT
  2. ETONOGESTREL [Suspect]
     Indication: CONTRACEPTION
     Dosage: UNK, UNK
     Route: 065
     Dates: start: 20060801, end: 20060901
  3. RAPAMUNE [Suspect]
     Indication: TRANSPLANT
     Dosage: 1MG
     Route: 048
     Dates: start: 20051201, end: 20060501
  4. RAPAMUNE [Suspect]
     Dosage: 8 MG, QD
     Route: 065
     Dates: start: 20060501
  5. RAPAMUNE [Suspect]
     Dosage: 1 MG, QD
     Dates: start: 20060101, end: 20060101
  6. AMLODIPINE [Concomitant]
     Dosage: 5 MG/DAY
     Route: 048
     Dates: start: 20060801
  7. PHENOXYMETHYL PENICILLIN [Concomitant]
     Dosage: 250 MG, BID
     Route: 048
  8. PREDNISOLONE [Concomitant]
     Route: 048
     Dates: start: 20051206
  9. RANITIDINE [Concomitant]
     Dosage: 150 MG, BID
     Route: 048
     Dates: start: 20051206

REACTIONS (3)
  - BLOOD CREATININE INCREASED [None]
  - DRUG INTERACTION [None]
  - RENAL IMPAIRMENT [None]
